FAERS Safety Report 6612164-X (Version None)
Quarter: 2010Q1

REPORT INFORMATION
  Report Type: 
  Country: None (occurrence: None)
  Receive Date: 20100302
  Receipt Date: 20100302
  Transmission Date: 20100710
  Serious: No
  Sender: FDA-Public Use
  Company Number: None

PATIENT
  Age: 78 Year
  Sex: Female
  Weight: 63.5036 kg

DRUGS (1)
  1. ABILIFY [Suspect]

REACTIONS (7)
  - ABASIA [None]
  - ACTIVITIES OF DAILY LIVING IMPAIRED [None]
  - HYPOPHAGIA [None]
  - INCONTINENCE [None]
  - MOVEMENT DISORDER [None]
  - MUSCLE RIGIDITY [None]
  - TARDIVE DYSKINESIA [None]
